FAERS Safety Report 12470341 (Version 4)
Quarter: 2017Q4

REPORT INFORMATION
  Report Type: Spontaneous
  Country: US (occurrence: US)
  Receive Date: 20160616
  Receipt Date: 20171120
  Transmission Date: 20180320
  Serious: Yes (Hospitalization)
  Sender: FDA-Public Use
  Company Number: US-ROCHE-1776179

PATIENT
  Age: 53 Year
  Sex: Male
  Weight: 73 kg

DRUGS (1)
  1. OMALIZUMAB. [Suspect]
     Active Substance: OMALIZUMAB
     Indication: ASTHMA
     Route: 058
     Dates: start: 20131001, end: 20151020

REACTIONS (1)
  - Pulmonary venous thrombosis [Recovering/Resolving]

NARRATIVE: CASE EVENT DATE: 20151006
